FAERS Safety Report 25377104 (Version 1)
Quarter: 2025Q2

REPORT INFORMATION
  Report Type: Spontaneous
  Country: US (occurrence: US)
  Receive Date: 20250530
  Receipt Date: 20250530
  Transmission Date: 20250717
  Serious: Yes (Death, Hospitalization, Other)
  Sender: RANBAXY
  Company Number: US-SUN PHARMACEUTICAL INDUSTRIES LTD-2025R1-508606

PATIENT
  Age: 33 Year
  Sex: Male

DRUGS (3)
  1. LEUCOVORIN CALCIUM [Suspect]
     Active Substance: LEUCOVORIN CALCIUM
     Indication: Chemotherapy
     Route: 065
  2. OXALIPLATIN [Suspect]
     Active Substance: OXALIPLATIN
     Indication: Chemotherapy
     Route: 065
  3. FLUOROURACIL [Suspect]
     Active Substance: FLUOROURACIL
     Indication: Chemotherapy
     Route: 065

REACTIONS (9)
  - Disease progression [Fatal]
  - Septic shock [Fatal]
  - Drug-induced liver injury [Fatal]
  - Pancytopenia [Fatal]
  - Thrombocytopenia [Fatal]
  - Circulatory collapse [Fatal]
  - Escherichia bacteraemia [Fatal]
  - Anaemia macrocytic [Fatal]
  - Hepatic failure [Fatal]
